FAERS Safety Report 10373117 (Version 2)
Quarter: 2014Q3

REPORT INFORMATION
  Report Type: Spontaneous
  Country: US (occurrence: US)
  Receive Date: 20140808
  Receipt Date: 20140808
  Transmission Date: 20150326
  Serious: Yes (Hospitalization)
  Sender: FDA-Public Use
  Company Number: US-BRISTOL-MYERS SQUIBB COMPANY-20030854

PATIENT
  Age: 67 Year
  Sex: Female

DRUGS (11)
  1. VITAMIN B12 [Concomitant]
     Active Substance: CYANOCOBALAMIN
  2. ULORIC [Concomitant]
     Active Substance: FEBUXOSTAT
  3. SPRYCEL [Suspect]
     Active Substance: DASATINIB
     Indication: CHRONIC MYELOID LEUKAEMIA
     Dosage: PATIENT WAS TAKING 50MG EVERY OTHER DAY.
     Route: 048
     Dates: start: 201309, end: 20140114
  4. COREG [Concomitant]
     Active Substance: CARVEDILOL
  5. VANCOMYCIN [Concomitant]
     Active Substance: VANCOMYCIN
  6. GLYBURIDE. [Concomitant]
     Active Substance: GLYBURIDE
  7. VITAMIN D3 [Concomitant]
     Active Substance: CHOLECALCIFEROL
  8. PRILOSEC [Concomitant]
     Active Substance: OMEPRAZOLE MAGNESIUM
  9. BUMETANIDE. [Concomitant]
     Active Substance: BUMETANIDE
  10. ISOSORBIDE [Concomitant]
     Active Substance: ISOSORBIDE
  11. ALDACTONE [Concomitant]
     Active Substance: SPIRONOLACTONE

REACTIONS (3)
  - Drug intolerance [Unknown]
  - Cardiac failure congestive [Unknown]
  - Full blood count decreased [Unknown]

NARRATIVE: CASE EVENT DATE: 20131201
